FAERS Safety Report 14468850 (Version 3)
Quarter: 2018Q1

REPORT INFORMATION
  Report Type: Spontaneous
  Country: US (occurrence: US)
  Receive Date: 20180131
  Receipt Date: 20180319
  Transmission Date: 20180509
  Serious: No
  Sender: FDA-Public Use
  Company Number: US-PFIZER INC-2018038349

PATIENT
  Age: 65 Year
  Sex: Female
  Weight: 79.38 kg

DRUGS (4)
  1. PANTOPRAZOLE [Concomitant]
     Active Substance: PANTOPRAZOLE
     Indication: GASTROOESOPHAGEAL REFLUX DISEASE
     Dosage: 40 MG, 2X/DAY
     Route: 048
  2. RALOXIFENE. [Concomitant]
     Active Substance: RALOXIFENE
     Indication: BREAST CANCER
     Dosage: 60 MG, 1X/DAY (1 TAB DAILY)
  3. RELPAX [Suspect]
     Active Substance: ELETRIPTAN HYDROBROMIDE
     Dosage: 40 MG, AS NEEDED, (AT ONSET REPEAT AFTER 2 HOURS MAX DOSE 2 IN 24 HOURS)
     Route: 048
  4. RELPAX [Suspect]
     Active Substance: ELETRIPTAN HYDROBROMIDE
     Indication: MIGRAINE
     Dosage: 40 MG, AS NEEDED, (AT ONSET REPEAT AFTER 2 HOURS MAX DOSE 2 IN 24 HOURS)
     Route: 048

REACTIONS (1)
  - Temperature intolerance [Recovered/Resolved]
